FAERS Safety Report 12480366 (Version 1)
Quarter: 2016Q2

REPORT INFORMATION
  Report Type: Report from Study
  Country: PE (occurrence: PE)
  Receive Date: 20160620
  Receipt Date: 20160620
  Transmission Date: 20160815
  Serious: Yes (Hospitalization, Other)
  Sender: FDA-Public Use
  Company Number: PE-009507513-1606PER007504

PATIENT
  Age: 76 Year
  Sex: Male

DRUGS (1)
  1. ZENHALE [Suspect]
     Active Substance: FORMOTEROL FUMARATE\MOMETASONE FUROATE
     Dosage: 1 INHALATION TWICE PER DAY (2 APPLICATIONS DAILY IN TOTAL)
     Route: 055
     Dates: start: 2015

REACTIONS (2)
  - Myocardial infarction [Unknown]
  - Cardiac operation [Unknown]

NARRATIVE: CASE EVENT DATE: 20160404
